FAERS Safety Report 4330948-8 (Version None)
Quarter: 2004Q1

REPORT INFORMATION
  Report Type: 
  Country: None (occurrence: None)
  Receive Date: 20040330
  Receipt Date: 20040316
  Transmission Date: 20041129
  Serious: Yes (Hospitalization, Other)
  Sender: FDA-Public Use
  Company Number: 235931

PATIENT

DRUGS (2)
  1. NOVORAPID PENFILL 3 ML (NOVORAPID PENFILL 3 ML) (INSULIN ASPART) SOLUT [Suspect]
     Indication: DIABETES MELLITUS
     Dosage: 23 IU, QD, INTRAVENOUS
     Route: 042
     Dates: start: 20021122
  2. PROTAPHANE PENFILL (INSULIN HUMAN) [Concomitant]

REACTIONS (2)
  - HYPOGLYCAEMIA NEONATAL [None]
  - MATERNAL DRUGS AFFECTING FOETUS [None]
